FAERS Safety Report 13563984 (Version 2)
Quarter: 2017Q2

REPORT INFORMATION
  Report Type: Spontaneous
  Country: US (occurrence: US)
  Receive Date: 20170519
  Receipt Date: 20170605
  Transmission Date: 20170830
  Serious: Yes (Other)
  Sender: FDA-Public Use
  Company Number: US-009507513-1705USA007353

PATIENT
  Age: 78 Year
  Sex: Female
  Weight: 79.38 kg

DRUGS (6)
  1. IBRANCE [Suspect]
     Active Substance: PALBOCICLIB
     Indication: NEOPLASM MALIGNANT
     Dosage: 100 MG, QD
     Route: 048
     Dates: end: 20170419
  2. HYZAAR [Suspect]
     Active Substance: HYDROCHLOROTHIAZIDE\LOSARTAN POTASSIUM
     Indication: BLOOD PRESSURE ABNORMAL
     Dosage: UNK
     Route: 048
     Dates: end: 20150402
  3. ZOCOR [Suspect]
     Active Substance: SIMVASTATIN
     Indication: BLOOD CHOLESTEROL ABNORMAL
     Dosage: 20MG TABLET, BY MOUTH, ONCE PER DAY
     Route: 048
  4. FASLODEX [Concomitant]
     Active Substance: FULVESTRANT
     Indication: NEOPLASM MALIGNANT
     Dosage: 500MG SHOT IN HER BUTT, EVERY 21 DAYS
  5. FASLODEX [Concomitant]
     Active Substance: FULVESTRANT
     Indication: CHEMOTHERAPY
  6. ASPIRIN. [Concomitant]
     Active Substance: ASPIRIN
     Indication: CEREBROVASCULAR ACCIDENT PROPHYLAXIS
     Dosage: 325MG TABLET, BY MOUTH, ONCE PER DAY
     Route: 048

REACTIONS (15)
  - Hypoacusis [Not Recovered/Not Resolved]
  - Neuropathy peripheral [Recovering/Resolving]
  - Head and neck cancer metastatic [Unknown]
  - Renal impairment [Unknown]
  - Mastectomy [Unknown]
  - Visual impairment [Unknown]
  - Body height decreased [Unknown]
  - Dizziness [Unknown]
  - Breast conserving surgery [Unknown]
  - Confusional state [Unknown]
  - Gait disturbance [Unknown]
  - Memory impairment [Unknown]
  - Product packaging issue [Unknown]
  - Metastases to lung [Unknown]
  - Fatigue [Unknown]

NARRATIVE: CASE EVENT DATE: 20120315
